FAERS Safety Report 6938304-0 (Version None)
Quarter: 2010Q3

REPORT INFORMATION
  Report Type: 
  Country: None (occurrence: None)
  Receive Date: 20100824
  Receipt Date: 20100813
  Transmission Date: 20110219
  Serious: Yes (Other)
  Sender: FDA-Public Use
  Company Number: PE-PFIZER INC-2010102090

PATIENT
  Age: 51 Year
  Sex: Female

DRUGS (3)
  1. LIPITOR [Suspect]
     Indication: DYSLIPIDAEMIA
     Dosage: 20 MG, 1X/DAY
     Route: 048
     Dates: start: 20100528, end: 20100701
  2. VALSARTAN [Concomitant]
     Indication: HYPERTENSION
     Dosage: 160 MG, UNK
  3. TIBOLONE [Concomitant]
     Dosage: 2.5 MG, UNK

REACTIONS (2)
  - ABDOMINAL PAIN UPPER [None]
  - JAUNDICE [None]
